APPROVED DRUG PRODUCT: METFORMIN HYDROCHLORIDE
Active Ingredient: METFORMIN HYDROCHLORIDE
Strength: 500MG
Dosage Form/Route: TABLET, EXTENDED RELEASE;ORAL
Application: A090014 | Product #001
Applicant: TORRENT PHARMACEUTICALS LTD
Approved: Dec 30, 2009 | RLD: No | RS: No | Type: DISCN